FAERS Safety Report 5586238-9 (Version None)
Quarter: 2007Q4

REPORT INFORMATION
  Report Type: 
  Country: None (occurrence: None)
  Receive Date: 20071212
  Receipt Date: 20070515
  Transmission Date: 20080405
  Serious: Yes (Disabling, Other)
  Sender: FDA-Public Use
  Company Number: USA-2007-0027392

PATIENT
  Age: 41 Year
  Sex: Male

DRUGS (3)
  1. OXYCONTIN [Suspect]
     Indication: PAIN
     Dosage: 80 MG, SEE TEXT, ORAL
     Route: 048
     Dates: start: 20060612, end: 20061003
  2. CLONAZEPAM [Concomitant]
  3. VICODIN [Concomitant]

REACTIONS (1)
  - DRUG ABUSE [None]
